FAERS Safety Report 11988493 (Version 1)
Quarter: 2016Q1

REPORT INFORMATION
  Report Type: Spontaneous
  Country: GB (occurrence: GB)
  Receive Date: 20160202
  Receipt Date: 20160202
  Transmission Date: 20160526
  Serious: Yes (Other)
  Sender: FDA-Public Use
  Company Number: GB-JNJFOC-20160118094

PATIENT
  Sex: Female

DRUGS (1)
  1. SIMPONI [Suspect]
     Active Substance: GOLIMUMAB
     Indication: PRODUCT USED FOR UNKNOWN INDICATION
     Route: 058

REACTIONS (11)
  - Contusion [Unknown]
  - Hypoaesthesia [Unknown]
  - Mobility decreased [Unknown]
  - Nerve compression [Unknown]
  - Paraesthesia [Unknown]
  - Gait disturbance [Unknown]
  - Peripheral swelling [Unknown]
  - Arthropathy [Unknown]
  - Foot fracture [Recovering/Resolving]
  - Weight increased [Unknown]
  - Eczema [Not Recovered/Not Resolved]
